FAERS Safety Report 18426037 (Version 1)
Quarter: 2020Q4

REPORT INFORMATION
  Report Type: Spontaneous
  Country: US (occurrence: US)
  Receive Date: 20201026
  Receipt Date: 20201026
  Transmission Date: 20210114
  Serious: Yes (Hospitalization)
  Sender: FDA-Public Use
  Company Number: None

PATIENT
  Sex: Male

DRUGS (2)
  1. NIVESTYM [Suspect]
     Active Substance: FILGRASTIM-AAFI
     Indication: AUTONOMIC NEUROPATHY
     Route: 058
     Dates: start: 20201014
  2. NIVESTYM [Suspect]
     Active Substance: FILGRASTIM-AAFI
     Indication: AUTONOMIC NEUROPATHY
     Route: 058
     Dates: start: 20201014

REACTIONS (1)
  - Transplant [None]
